FAERS Safety Report 17752456 (Version 2)
Quarter: 2020Q2

REPORT INFORMATION
  Report Type: Spontaneous
  Country: US (occurrence: US)
  Receive Date: 20200506
  Receipt Date: 20200610
  Transmission Date: 20200714
  Serious: No
  Sender: FDA-Public Use
  Company Number: US-PFIZER INC-2020181432

PATIENT
  Age: 66 Year
  Sex: Female

DRUGS (1)
  1. IBRANCE [Suspect]
     Active Substance: PALBOCICLIB
     Indication: NEOPLASM MALIGNANT
     Dosage: 125 MG, CYCLIC [1 C PO (ORAL) QD (EVERYDAY) DAILY FOR 21 DAYS 7 DAYS OFF]
     Route: 048

REACTIONS (2)
  - Fatigue [Unknown]
  - White blood cell count decreased [Recovered/Resolved]
